FAERS Safety Report 4595646-4 (Version None)
Quarter: 2005Q1

REPORT INFORMATION
  Report Type: 
  Country: None (occurrence: None)
  Receive Date: 20050223
  Receipt Date: 20050223
  Transmission Date: 20050727
  Serious: Yes (Hospitalization, Other)
  Sender: FDA-Public Use
  Company Number: None

PATIENT
  Age: 82 Year
  Sex: Male
  Weight: 68.0396 kg

DRUGS (2)
  1. PREDNISONE [Suspect]
     Indication: RHEUMATOID ARTHRITIS
     Dosage: 20 MG PO DAILY
     Route: 048
     Dates: start: 20041012, end: 20041015
  2. FLUDROCORTISONE [Suspect]
     Indication: HYPOTENSION
     Dosage: 0.1 MG PO DAILY
     Route: 048
     Dates: start: 20041010, end: 20041016

REACTIONS (6)
  - AGITATION [None]
  - CONFUSIONAL STATE [None]
  - DISORIENTATION [None]
  - MENTAL STATUS CHANGES [None]
  - RESTLESSNESS [None]
  - SOMNOLENCE [None]
